FAERS Safety Report 7616874-7 (Version None)
Quarter: 2011Q3

REPORT INFORMATION
  Report Type: 
  Country: None (occurrence: None)
  Receive Date: 20110718
  Receipt Date: 20110706
  Transmission Date: 20111222
  Serious: No
  Sender: FDA-Public Use
  Company Number: US-BIOGENIDEC-2011BI025126

PATIENT
  Sex: Female

DRUGS (2)
  1. TYSABRI [Suspect]
     Indication: MULTIPLE SCLEROSIS
     Route: 042
     Dates: start: 20081208
  2. TYSABRI [Suspect]
     Route: 042
     Dates: start: 20071011, end: 20080303

REACTIONS (6)
  - NEURALGIA [None]
  - FATIGUE [None]
  - POOR VENOUS ACCESS [None]
  - TEMPERATURE INTOLERANCE [None]
  - BURNING SENSATION [None]
  - PAIN [None]
